FAERS Safety Report 6505163-X (Version None)
Quarter: 2009Q4

REPORT INFORMATION
  Report Type: 
  Country: None (occurrence: None)
  Receive Date: 20091218
  Receipt Date: 20091210
  Transmission Date: 20100525
  Serious: Yes (Other)
  Sender: FDA-Public Use
  Company Number: PHHY2009DE54901

PATIENT
  Sex: Female

DRUGS (3)
  1. CGS 20267 T30748+ [Suspect]
     Indication: BREAST CANCER
     Dosage: 2.5 MG DAILY
     Route: 048
     Dates: start: 20090126, end: 20091123
  2. ST. JOHN'S WORT [Concomitant]
     Dosage: UNK
     Dates: start: 20080101
  3. NOOTROP [Concomitant]
     Dosage: UNK
     Dates: start: 20080101

REACTIONS (4)
  - ARTHROPATHY [None]
  - HOT FLUSH [None]
  - INSOMNIA [None]
  - MOOD SWINGS [None]
